FAERS Safety Report 20341163 (Version 1)
Quarter: 2022Q1

REPORT INFORMATION
  Report Type: Report from Study
  Country: CO (occurrence: CO)
  Receive Date: 20220117
  Receipt Date: 20220117
  Transmission Date: 20220423
  Serious: Yes (Hospitalization, Other)
  Sender: FDA-Public Use
  Company Number: CO-BRISTOL-MYERS SQUIBB COMPANY-BMS-2021-068315

PATIENT
  Age: 70 Year
  Sex: Male
  Weight: 85 kg

DRUGS (5)
  1. DASATINIB [Suspect]
     Active Substance: DASATINIB
     Indication: Chronic myeloid leukaemia
     Dosage: 100 MILLIGRAM, EVERY DAY
     Route: 048
     Dates: start: 20190918
  2. DASATINIB [Suspect]
     Active Substance: DASATINIB
     Dosage: 200 MILLIGRAM, QD
     Route: 048
     Dates: start: 20190918
  3. COVID-19 VACCINE [Concomitant]
     Indication: COVID-19 immunisation
     Dosage: UNK
     Route: 065
  4. COVID-19 VACCINE [Concomitant]
     Dosage: UNK, SECOND DOSE
     Route: 065
  5. COMPLEJO B [VITAMIN B COMPLEX] [Concomitant]
     Indication: Adverse event
     Dosage: ONE TABLET, MG, EVERY 12 HOURS
     Route: 048

REACTIONS (4)
  - Aortic injury [Unknown]
  - Chest pain [Recovering/Resolving]
  - Fatigue [Recovering/Resolving]
  - Back pain [Recovering/Resolving]

NARRATIVE: CASE EVENT DATE: 20211019
